FAERS Safety Report 16925209 (Version 1)
Quarter: 2019Q4

REPORT INFORMATION
  Report Type: Spontaneous
  Country: GB (occurrence: GB)
  Receive Date: 20191016
  Receipt Date: 20191016
  Transmission Date: 20200122
  Serious: Yes (Hospitalization, Other)
  Sender: FDA-Public Use
  Company Number: GB-SA-2019SA284444

PATIENT
  Age: 27 Year
  Sex: Female

DRUGS (1)
  1. LEMTRADA [Suspect]
     Active Substance: ALEMTUZUMAB
     Dosage: UNK UNK, UNK
     Route: 041
     Dates: start: 2018

REACTIONS (3)
  - Immune thrombocytopenic purpura [Unknown]
  - Platelet count decreased [Unknown]
  - Renal failure [Unknown]
